FAERS Safety Report 6569250-2 (Version None)
Quarter: 2010Q1

REPORT INFORMATION
  Report Type: 
  Country: None (occurrence: None)
  Receive Date: 20100203
  Receipt Date: 20100125
  Transmission Date: 20100710
  Serious: Yes (Hospitalization, Disabling, Other)
  Sender: FDA-Public Use
  Company Number: US-ABBOTT-10P-163-0621847-00

PATIENT
  Sex: Male
  Weight: 134.38 kg

DRUGS (9)
  1. HUMIRA [Suspect]
     Indication: RHEUMATOID ARTHRITIS
     Dates: start: 20090101
  2. HUMIRA [Suspect]
  3. HUMIRA [Suspect]
     Dates: start: 20100101
  4. LOTREL [Concomitant]
     Indication: HYPERTENSION
  5. FLOMAX [Concomitant]
     Indication: BENIGN PROSTATIC HYPERPLASIA
  6. LEFLUNOMIDE [Concomitant]
     Indication: RHEUMATOID ARTHRITIS
  7. AMLODIPINE [Concomitant]
     Indication: HYPERTENSION
  8. SULFASALAZINE [Concomitant]
     Indication: RHEUMATOID ARTHRITIS
  9. TRAMADOL HCL [Concomitant]
     Indication: RHEUMATOID ARTHRITIS

REACTIONS (4)
  - ARTHRITIS [None]
  - ESCHERICHIA INFECTION [None]
  - MENISCUS LESION [None]
  - NASOPHARYNGITIS [None]
